FAERS Safety Report 11933332 (Version 1)
Quarter: 2016Q1

REPORT INFORMATION
  Report Type: Spontaneous
  Country: CN (occurrence: CN)
  Receive Date: 20160121
  Receipt Date: 20160121
  Transmission Date: 20160526
  Serious: Yes (Other)
  Sender: FDA-Public Use
  Company Number: CN-PFIZER INC-2016031404

PATIENT
  Age: 94 Year
  Sex: Male

DRUGS (1)
  1. CORDARONE [Suspect]
     Active Substance: AMIODARONE HYDROCHLORIDE
     Indication: ARRHYTHMIA
     Dosage: 100 MG, 2X/DAY
     Route: 048
     Dates: start: 20120101, end: 20150826

REACTIONS (6)
  - Palpitations [Recovering/Resolving]
  - Sinus arrest [Unknown]
  - Electrocardiogram ST-T segment abnormal [Unknown]
  - Electrocardiogram RR interval prolonged [Unknown]
  - Supraventricular extrasystoles [Unknown]
  - Tachycardia paroxysmal [Unknown]

NARRATIVE: CASE EVENT DATE: 20150826
